FAERS Safety Report 5143578-5 (Version None)
Quarter: 2006Q4

REPORT INFORMATION
  Report Type: 
  Country: None (occurrence: None)
  Receive Date: 20061103
  Receipt Date: 20061025
  Transmission Date: 20070319
  Serious: Yes (Hospitalization)
  Sender: FDA-Public Use
  Company Number: GB-NOVOPROD-257990

PATIENT
  Sex: Female

DRUGS (1)
  1. NOVORAPID [Suspect]
     Indication: DIABETES MELLITUS
     Dosage: 140 IU, UNK

REACTIONS (3)
  - ANGER [None]
  - BLOOD GLUCOSE DECREASED [None]
  - SUICIDE ATTEMPT [None]
